FAERS Safety Report 9277847 (Version 1)
Quarter: 2012Q4

REPORT INFORMATION
  Report Type: Spontaneous
  Country: US (occurrence: None)
  Receive Date: 20121210
  Receipt Date: 20121210
  Transmission Date: 20130627
  Serious: Yes (Hospitalization, Other)
  Sender: FDA-Public Use
  Company Number: FK201203704

PATIENT
  Age: 8 Year
  Sex: Male

DRUGS (5)
  1. ONDANSETRON [Suspect]
     Indication: PRODUCT USED FOR UNKNOWN INDICATION
     Dosage: (ingested 15 tablets intentionally)
     Route: 048
  2. ONDANSETRON [Suspect]
     Indication: PRODUCT USED FOR UNKNOWN INDICATION
     Dosage: 3 times daily as needed
     Route: 048
  3. MERCAPTOPURINE (MERCAPTOPURINE) [Concomitant]
  4. METHOTREXATE (METHOTREXATE) [Concomitant]
  5. SULFAMETHOXAZOLE W/TRIMETHOPRIM(BACTRIM /00086101/) [Concomitant]

REACTIONS (4)
  - Intentional overdose [None]
  - Hypotension [None]
  - Vomiting [None]
  - Anaemia macrocytic [None]
